FAERS Safety Report 15491816 (Version 1)
Quarter: 2018Q4

REPORT INFORMATION
  Report Type: Spontaneous
  Country: US (occurrence: US)
  Receive Date: 20181011
  Receipt Date: 20181011
  Transmission Date: 20190205
  Serious: Yes (Other)
  Sender: FDA-Public Use
  Company Number: None

PATIENT
  Age: 62 Year
  Sex: Female
  Weight: 108.45 kg

DRUGS (13)
  1. LEVEMIR [Concomitant]
     Active Substance: INSULIN DETEMIR
  2. FOLIC ACID. [Concomitant]
     Active Substance: FOLIC ACID
  3. CIMZIA [Suspect]
     Active Substance: CERTOLIZUMAB PEGOL
     Indication: PSORIATIC ARTHROPATHY
     Dosage: ??          OTHER FREQUENCY:MONTHLY;?
     Route: 058
     Dates: start: 20180307, end: 20180523
  4. ZINC. [Concomitant]
     Active Substance: ZINC
  5. HYDROCHLOROTHYAZIDE [Concomitant]
     Active Substance: HYDROCHLOROTHIAZIDE
  6. VITAMIN B12 [Concomitant]
     Active Substance: CYANOCOBALAMIN
  7. VITAMIN D3 [Concomitant]
     Active Substance: CHOLECALCIFEROL
  8. FIBER [Concomitant]
     Active Substance: PSYLLIUM HUSK
  9. RANITIDINE. [Concomitant]
     Active Substance: RANITIDINE
  10. POTASSIUM [Concomitant]
     Active Substance: POTASSIUM
  11. FISH OIL [Concomitant]
     Active Substance: FISH OIL
  12. NOVOLOG [Concomitant]
     Active Substance: INSULIN ASPART
  13. MAGNESIUM [Concomitant]
     Active Substance: MAGNESIUM

REACTIONS (10)
  - Chest X-ray abnormal [None]
  - Echocardiogram abnormal [None]
  - Cardiac stress test abnormal [None]
  - Respiratory fume inhalation disorder [None]
  - Electrocardiogram abnormal [None]
  - Chest pain [None]
  - Dysphagia [None]
  - Gait inability [None]
  - Communication disorder [None]
  - Product complaint [None]

NARRATIVE: CASE EVENT DATE: 20180307
